FAERS Safety Report 5233581-9 (Version None)
Quarter: 2007Q1

REPORT INFORMATION
  Report Type: 
  Country: None (occurrence: None)
  Receive Date: 20070208
  Receipt Date: 20070129
  Transmission Date: 20070707
  Serious: Yes (Hospitalization)
  Sender: FDA-Public Use
  Company Number: US-AMGEN-US208764

PATIENT
  Sex: Male

DRUGS (13)
  1. SENSIPAR [Suspect]
     Indication: HYPERPARATHYROIDISM SECONDARY
     Route: 065
     Dates: start: 20051115, end: 20070119
  2. HYDROCHLOROTHIAZIDE [Concomitant]
     Route: 065
     Dates: start: 20070101, end: 20070119
  3. CELLCEPT [Concomitant]
  4. PROGRAF [Concomitant]
  5. ASPIRIN [Concomitant]
  6. DIOVAN [Concomitant]
  7. NORVASC [Concomitant]
  8. DULCOLAX [Concomitant]
  9. BACTRIM [Concomitant]
     Dates: start: 20051201, end: 20060101
  10. VALCYTET [Concomitant]
     Dates: start: 20051201, end: 20060101
  11. COLCHICINE [Concomitant]
  12. EPIVIR [Concomitant]
     Dates: start: 20051201, end: 20060101
  13. PRILOSEC [Concomitant]

REACTIONS (8)
  - DECREASED APPETITE [None]
  - DEPRESSION [None]
  - FATIGUE [None]
  - HYPERPARATHYROIDISM SECONDARY [None]
  - INSOMNIA [None]
  - MYALGIA [None]
  - PRURITUS [None]
  - RENAL TRANSPLANT [None]
